FAERS Safety Report 6695812-8 (Version None)
Quarter: 2010Q2

REPORT INFORMATION
  Report Type: 
  Country: None (occurrence: None)
  Receive Date: 20100421
  Receipt Date: 20100412
  Transmission Date: 20101027
  Serious: Yes (Other)
  Sender: FDA-Public Use
  Company Number: 2010EU001332

PATIENT
  Sex: Male
  Weight: 81 kg

DRUGS (6)
  1. PROGRAF [Suspect]
     Indication: RENAL TRANSPLANT
     Dosage: 4 MG, D, ORAL
     Route: 048
     Dates: start: 20090921
  2. RANITIDINE [Concomitant]
  3. RAMIPRIL [Concomitant]
  4. BISOPROLOL FUMARATE [Concomitant]
  5. PREDNISOLONE [Concomitant]
  6. ASPIRIN [Concomitant]

REACTIONS (4)
  - CAPSULE ISSUE [None]
  - DRUG LEVEL BELOW THERAPEUTIC [None]
  - HYPERTENSION [None]
  - PRODUCT QUALITY ISSUE [None]
